FAERS Safety Report 6273751-4 (Version None)
Quarter: 2009Q3

REPORT INFORMATION
  Report Type: 
  Country: None (occurrence: None)
  Receive Date: 20090720
  Receipt Date: 20090716
  Transmission Date: 20100115
  Serious: Yes (Other)
  Sender: FDA-Public Use
  Company Number: A0797345A

PATIENT
  Age: 63 Year
  Sex: Female

DRUGS (10)
  1. ADVAIR HFA [Suspect]
     Indication: ASTHMA
     Dosage: 1PUFF TWICE PER DAY
     Route: 055
     Dates: start: 20080101, end: 20090301
  2. VALTREX [Suspect]
     Indication: ORAL INFECTION
     Dosage: 1TAB PER DAY
     Route: 048
     Dates: start: 20090101, end: 20090101
  3. SINGULAIR [Concomitant]
  4. IMITREX [Concomitant]
  5. ANTIBIOTIC [Concomitant]
  6. CARBIDOPA [Concomitant]
  7. COMTAN [Concomitant]
  8. VAGIFEM [Concomitant]
  9. PREMARIN [Concomitant]
  10. BLOOD PRESSURE MEDICATION [Concomitant]

REACTIONS (5)
  - CATARACT [None]
  - DRUG INEFFECTIVE [None]
  - OEDEMA GENITAL [None]
  - ORAL FUNGAL INFECTION [None]
  - VULVOVAGINAL MYCOTIC INFECTION [None]
